FAERS Safety Report 5019940-8 (Version None)
Quarter: 2006Q2

REPORT INFORMATION
  Report Type: 
  Country: None (occurrence: None)
  Receive Date: 20060607
  Receipt Date: 20060427
  Transmission Date: 20061013
  Serious: Yes (Other)
  Sender: FDA-Public Use
  Company Number: 2006AP02014

PATIENT
  Age: 22328 Day
  Sex: Female

DRUGS (11)
  1. DIPRIVAN [Suspect]
     Indication: SEDATION
     Route: 042
     Dates: start: 20060329, end: 20060411
  2. MEROPEN [Suspect]
     Indication: PNEUMONIA
     Route: 042
     Dates: start: 20060329, end: 20060411
  3. NEOPAREN [Suspect]
     Indication: PARENTERAL NUTRITION
     Route: 042
     Dates: start: 20060401
  4. MINOPEN [Suspect]
     Indication: PNEUMONIA
     Route: 041
     Dates: start: 20060323, end: 20060406
  5. FLUMARIN [Suspect]
     Indication: PNEUMONIA
     Route: 042
     Dates: start: 20060323, end: 20060329
  6. SOKUSIDON [Suspect]
     Indication: DISSEMINATED INTRAVASCULAR COAGULATION
     Route: 042
     Dates: start: 20060330, end: 20060406
  7. ELASPOL [Suspect]
     Indication: SYSTEMIC INFLAMMATORY RESPONSE SYNDROME
     Route: 042
     Dates: start: 20060330, end: 20060410
  8. ELASPOL [Suspect]
     Indication: PNEUMONIA
     Route: 042
     Dates: start: 20060330, end: 20060410
  9. INOVAN [Suspect]
     Indication: SHOCK
     Route: 042
     Dates: start: 20060330
  10. NEOPHYLLIN [Concomitant]
     Indication: ASTHMA
     Dates: start: 20060325, end: 20060330
  11. NEOPHYLLIN [Concomitant]
     Indication: CHRONIC OBSTRUCTIVE PULMONARY DISEASE
     Dates: start: 20060325, end: 20060330

REACTIONS (6)
  - BLOOD BILIRUBIN INCREASED [None]
  - DISSEMINATED INTRAVASCULAR COAGULATION [None]
  - HYPERCAPNIA [None]
  - JAUNDICE [None]
  - SHOCK [None]
  - SYSTEMIC INFLAMMATORY RESPONSE SYNDROME [None]
